FAERS Safety Report 18678398 (Version 1)
Quarter: 2020Q4

REPORT INFORMATION
  Report Type: Report from Study
  Country: US (occurrence: US)
  Receive Date: 20201229
  Receipt Date: 20201229
  Transmission Date: 20210114
  Serious: No
  Sender: FDA-Public Use
  Company Number: US-CLOVIS ONCOLOGY-CLO-2020-000370

PATIENT
  Age: 68 Year
  Sex: Female

DRUGS (3)
  1. RUBRACA [Suspect]
     Active Substance: RUCAPARIB CAMSYLATE
     Dosage: 300MG AM, 600MG PM
     Route: 048
     Dates: start: 20191030, end: 202006
  2. RUBRACA [Suspect]
     Active Substance: RUCAPARIB CAMSYLATE
     Indication: OVARIAN CANCER
     Dosage: 300MG IN AM AND 600MG IN PM
     Route: 048
     Dates: start: 20180921
  3. RUBRACA [Suspect]
     Active Substance: RUCAPARIB CAMSYLATE
     Dosage: 300MG IN AM AND 600MG IN PM
     Route: 048
     Dates: start: 20191029, end: 202006

REACTIONS (10)
  - Fatigue [Recovering/Resolving]
  - Papule [Unknown]
  - Pruritus [Unknown]
  - Carbohydrate antigen 125 increased [Recovering/Resolving]
  - Nasopharyngitis [Unknown]
  - Skin exfoliation [Unknown]
  - Cough [Unknown]
  - Product dose omission issue [Unknown]
  - Red blood cell count decreased [Unknown]
  - Creatinine renal clearance decreased [Unknown]

NARRATIVE: CASE EVENT DATE: 202002
